FAERS Safety Report 9319085 (Version 3)
Quarter: 2013Q4

REPORT INFORMATION
  Report Type: Spontaneous
  Country: US (occurrence: US)
  Receive Date: 20130530
  Receipt Date: 20131107
  Transmission Date: 20140711
  Serious: Yes (Death, Hospitalization)
  Sender: FDA-Public Use
  Company Number: US-PFIZER INC-2013159945

PATIENT
  Age: 65 Year
  Sex: Male

DRUGS (2)
  1. VFEND [Suspect]
     Indication: PROPHYLAXIS
     Dosage: 200 MG, 2X/DAY
     Dates: start: 20130418
  2. VFEND [Suspect]
     Indication: ACUTE MYELOID LEUKAEMIA
     Dosage: 300 MG, 2X/DAY
     Dates: start: 20130419

REACTIONS (2)
  - Acute myeloid leukaemia [Fatal]
  - Disease progression [Fatal]
